FAERS Safety Report 14014463 (Version 2)
Quarter: 2018Q4

REPORT INFORMATION
  Report Type: Spontaneous
  Country: US (occurrence: US)
  Receive Date: 20170927
  Receipt Date: 20181228
  Transmission Date: 20190204
  Serious: No
  Sender: FDA-Public Use
  Company Number: US-BIOGEN-2017BI00462114

PATIENT
  Sex: Female

DRUGS (2)
  1. AVONEX [Suspect]
     Active Substance: INTERFERON BETA-1A
     Indication: MULTIPLE SCLEROSIS
     Route: 065
     Dates: start: 20070201, end: 201706
  2. AVONEX [Suspect]
     Active Substance: INTERFERON BETA-1A
     Route: 030
     Dates: start: 200702

REACTIONS (7)
  - Musculoskeletal disorder [Not Recovered/Not Resolved]
  - Nausea [Recovered/Resolved]
  - Scar [Not Recovered/Not Resolved]
  - Influenza like illness [Recovered/Resolved]
  - Pain [Recovered/Resolved]
  - Feeling abnormal [Recovered/Resolved]
  - Chills [Recovered/Resolved]
